FAERS Safety Report 10515211 (Version 2)
Quarter: 2014Q4

REPORT INFORMATION
  Report Type: Spontaneous
  Country: US (occurrence: US)
  Receive Date: 20141014
  Receipt Date: 20141014
  Transmission Date: 20150528
  Serious: Yes (Hospitalization)
  Sender: FDA-Public Use
  Company Number: US-UNITED THERAPEUTICS-UNT-2014-008633

PATIENT
  Sex: Female
  Weight: 65.99 kg

DRUGS (1)
  1. REMODULIN [Suspect]
     Active Substance: TREPROSTINIL
     Indication: PULMONARY ARTERIAL HYPERTENSION
     Dosage: 0.010 ?G/KG/MIN, CONTINUING
     Route: 041
     Dates: start: 20140926

REACTIONS (10)
  - Headache [Unknown]
  - Oedema peripheral [Unknown]
  - Fatigue [Unknown]
  - Hypotension [Unknown]
  - Diarrhoea [Unknown]
  - Anxiety [Unknown]
  - Back pain [Unknown]
  - Dyspnoea [Unknown]
  - Myalgia [Unknown]
  - Abdominal discomfort [Unknown]

NARRATIVE: CASE EVENT DATE: 2014
